FAERS Safety Report 8776074 (Version 3)
Quarter: 2012Q4

REPORT INFORMATION
  Report Type: 
  Country: BR (occurrence: BR)
  Receive Date: 20120911
  Receipt Date: 20120919
  Transmission Date: 20130627
  Serious: Yes (Hospitalization, Other)
  Sender: FDA-Public Use
  Company Number: BR-ABBOTT-12P-020-0975242-00

PATIENT
  Age: 23 Year
  Sex: Female
  Weight: 56 kg

DRUGS (5)
  1. KALETRA TABLETS [Suspect]
     Dosage: 200+50mg in the morning/at night
     Route: 048
     Dates: start: 200903, end: 20120829
  2. UNSPECIFIED DRUG [Suspect]
     Indication: PRODUCT USED FOR UNKNOWN INDICATION
  3. UNKNOWN MEDICATIONS [Concomitant]
     Indication: PRODUCT USED FOR UNKNOWN INDICATION
     Dosage: during pregnancy
  4. UNSPECIFIED DRUG [Concomitant]
     Indication: PRODUCT USED FOR UNKNOWN INDICATION
     Dosage: during pregnancy
  5. UNSPECIFIED DRUG [Concomitant]
     Indication: PRODUCT USED FOR UNKNOWN INDICATION
     Dosage: during pregnancy

REACTIONS (14)
  - Abortion spontaneous [Unknown]
  - Uterine pain [Unknown]
  - Abasia [Unknown]
  - Depression [Unknown]
  - Abdominal pain upper [Not Recovered/Not Resolved]
  - Abdominal pain lower [Not Recovered/Not Resolved]
  - Retching [Not Recovered/Not Resolved]
  - Dysgeusia [Not Recovered/Not Resolved]
  - Decreased appetite [Unknown]
  - Anaemia [Not Recovered/Not Resolved]
  - Breast engorgement [Unknown]
  - Influenza [Unknown]
  - Feeling abnormal [Unknown]
  - Dysgeusia [Unknown]
